FAERS Safety Report 5101022-8 (Version None)
Quarter: 2006Q3

REPORT INFORMATION
  Report Type: 
  Country: None (occurrence: None)
  Receive Date: 20060731
  Receipt Date: 20060623
  Transmission Date: 20061208
  Serious: No
  Sender: FDA-Public Use
  Company Number: 2006PV016306

PATIENT
  Age: 72 Year
  Sex: Female

DRUGS (4)
  1. BYETTA [Suspect]
     Indication: DIABETES MELLITUS
     Dosage: SEE IMAGE
     Route: 058
     Dates: start: 20060501, end: 20060101
  2. BYETTA [Suspect]
     Indication: DIABETES MELLITUS
     Dosage: SEE IMAGE
     Route: 058
     Dates: start: 20060101, end: 20060601
  3. PRANDIN [Concomitant]
  4. HUMALOG MIX [Concomitant]

REACTIONS (3)
  - ABDOMINAL PAIN UPPER [None]
  - ERUCTATION [None]
  - WEIGHT DECREASED [None]
